FAERS Safety Report 7014781-4 (Version None)
Quarter: 2010Q3

REPORT INFORMATION
  Report Type: 
  Country: None (occurrence: None)
  Receive Date: 20100927
  Receipt Date: 20100914
  Transmission Date: 20110219
  Serious: Yes (Hospitalization)
  Sender: FDA-Public Use
  Company Number: US-SANOFI-AVENTIS-2010SA055639

PATIENT
  Sex: Male

DRUGS (2)
  1. LANTUS [Suspect]
     Dosage: DOSE:20 UNIT(S)
     Route: 058
  2. SOLOSTAR [Suspect]

REACTIONS (4)
  - GANGRENE [None]
  - LEG AMPUTATION [None]
  - OSTEOMYELITIS [None]
  - PAIN [None]
